FAERS Safety Report 4370555-4 (Version None)
Quarter: 2004Q2

REPORT INFORMATION
  Report Type: 
  Country: None (occurrence: None)
  Receive Date: 20040528
  Receipt Date: 20040519
  Transmission Date: 20050107
  Serious: Yes (Hospitalization)
  Sender: FDA-Public Use
  Company Number: 2004196724US

PATIENT
  Age: 59 Year
  Sex: Female

DRUGS (11)
  1. ELLENCE [Suspect]
     Indication: BREAST CANCER
     Dosage: 150 MG, Q3WEKS/CYCLIC
     Dates: start: 20040115
  2. TAXOTERE [Suspect]
     Indication: BREAST CANCER
     Dosage: 150 MG, Q3WEEKS/CYCLIC
     Dates: start: 20040115
  3. CYCLOPHOSPHAMIDE [Suspect]
     Indication: BREAST CANCER
     Dosage: 1000 MG, Q3WEEKS/CYCLIC
     Dates: start: 20040115
  4. COZAAR [Concomitant]
  5. ROFECOXIB [Concomitant]
  6. LIPITOR [Concomitant]
  7. ZANTAC [Concomitant]
  8. IMODIUM [Concomitant]
  9. METOCLOPRAMIDE [Concomitant]
  10. DEXAMETHASONE [Concomitant]
  11. ZOFRAN [Concomitant]

REACTIONS (5)
  - ASTHENIA [None]
  - DIARRHOEA [None]
  - NAUSEA [None]
  - NEUTROPENIA [None]
  - VOMITING [None]
